FAERS Safety Report 5836916-9 (Version None)
Quarter: 2008Q3

REPORT INFORMATION
  Report Type: 
  Country: None (occurrence: None)
  Receive Date: 20080805
  Receipt Date: 20080723
  Transmission Date: 20090109
  Serious: Yes (Other)
  Sender: FDA-Public Use
  Company Number: CERZ-1000311

PATIENT
  Age: 3 Year
  Sex: Male

DRUGS (2)
  1. CEREZYME [Suspect]
     Indication: GAUCHER'S DISEASE
     Dosage: 120 U/KG, Q2W, INTRAVENOUS, 60 U/KG, Q2W, INTRAVENOUS
     Route: 042
     Dates: start: 20060801, end: 20070201
  2. CEREZYME [Suspect]
     Indication: GAUCHER'S DISEASE
     Dosage: 120 U/KG, Q2W, INTRAVENOUS, 60 U/KG, Q2W, INTRAVENOUS
     Route: 042
     Dates: start: 20070301

REACTIONS (5)
  - ADENOTONSILLECTOMY [None]
  - BRONCHITIS [None]
  - NASOPHARYNGITIS [None]
  - RESPIRATORY ARREST [None]
  - UPPER RESPIRATORY TRACT INFECTION [None]
